FAERS Safety Report 20429557 (Version 1)
Quarter: 2022Q1

REPORT INFORMATION
  Report Type: Report from Study
  Country: US (occurrence: US)
  Receive Date: 20220204
  Receipt Date: 20220204
  Transmission Date: 20220424
  Serious: Yes (Life-Threatening, Hospitalization)
  Sender: FDA-Public Use
  Company Number: US-SERVIER-S19011085

PATIENT

DRUGS (17)
  1. ONCASPAR [Suspect]
     Active Substance: PEGASPARGASE
     Indication: Acute lymphocytic leukaemia
     Dosage: 3750 IU ON DAYS 15 AND 43
     Route: 042
     Dates: start: 20190723, end: 20190820
  2. ONCASPAR [Suspect]
     Active Substance: PEGASPARGASE
     Dosage: 3750 IU ON DAYS 4 AND 43
     Route: 042
     Dates: start: 20191217, end: 20200210
  3. ONCASPAR [Suspect]
     Active Substance: PEGASPARGASE
     Dosage: 3750 IU ON DAYS 1, 21
     Route: 042
     Dates: start: 20200306
  4. RUXOLITINIB PHOSPHATE [Suspect]
     Active Substance: RUXOLITINIB PHOSPHATE
     Indication: Acute lymphocytic leukaemia
     Dosage: 95 MG, BID ON DAYS 1-14 AND 29-42
     Route: 048
     Dates: start: 20190709, end: 20200313
  5. CYCLOPHOSPHAMIDE [Suspect]
     Active Substance: CYCLOPHOSPHAMIDE
     Indication: Acute lymphocytic leukaemia
     Dosage: 1860 MG ON DAYS 1 AND 29
     Route: 042
     Dates: start: 20190709, end: 20190806
  6. CYCLOPHOSPHAMIDE [Suspect]
     Active Substance: CYCLOPHOSPHAMIDE
     Dosage: 1900 MG, ON DAY 29
     Route: 042
     Dates: start: 20200127, end: 20200127
  7. CYTARABINE [Suspect]
     Active Substance: CYTARABINE
     Indication: Acute lymphocytic leukaemia
     Dosage: 140 MG ON DAYS 1-4, 8-11, 29-32, 36-39
     Route: 042
     Dates: start: 20190709
  8. CYTARABINE [Suspect]
     Active Substance: CYTARABINE
     Dosage: 142 MG ON DAYS 29-32, 36-39
     Route: 042
     Dates: start: 20200127, end: 20200206
  9. MERCAPTOPURINE [Suspect]
     Active Substance: MERCAPTOPURINE
     Indication: Acute lymphocytic leukaemia
     Dosage: 50 MG DAILY FOR 5 DAYS AND 75 MG DAILY FOR 2 DAYS, ON DAYS 1-14 AND 29-42
     Route: 048
     Dates: start: 20190709, end: 20190819
  10. METHOTREXATE [Suspect]
     Active Substance: METHOTREXATE
     Indication: Acute lymphocytic leukaemia
     Dosage: 15 MG ON DAYS 1, 8, 15 AND 22
     Route: 037
     Dates: start: 20190709, end: 20190730
  11. METHOTREXATE [Suspect]
     Active Substance: METHOTREXATE
     Dosage: 15 MG ON DAYS 1,29,36
     Route: 037
     Dates: start: 20191212, end: 20200203
  12. METHOTREXATE [Suspect]
     Active Substance: METHOTREXATE
     Dosage: 15 MG, ON DAYS 1
     Route: 037
     Dates: start: 20200305
  13. METHOTREXATE [Suspect]
     Active Substance: METHOTREXATE
     Dosage: 180 MG, ON DAYS 1, 11, 21
     Route: 042
     Dates: start: 20200305
  14. VINCRISTINE SULFATE [Suspect]
     Active Substance: VINCRISTINE SULFATE
     Indication: Acute lymphocytic leukaemia
     Dosage: 2 MG ON DAYS 15, 22 AND 43
     Route: 042
     Dates: start: 20190723, end: 20190820
  15. VINCRISTINE SULFATE [Suspect]
     Active Substance: VINCRISTINE SULFATE
     Dosage: 2 MG ON DAYS 1,8,15,43,50
     Route: 042
     Dates: start: 20191212, end: 20200217
  16. VINCRISTINE SULFATE [Suspect]
     Active Substance: VINCRISTINE SULFATE
     Dosage: 1950 MG ON DAYS 1,11,21
     Route: 042
     Dates: start: 20200305
  17. THIOGUANINE [Suspect]
     Active Substance: THIOGUANINE
     Indication: Acute lymphocytic leukaemia
     Dosage: 80 MG ON DAYS 29-42
     Route: 048
     Dates: start: 20191212, end: 20200209

REACTIONS (5)
  - Thrombosis [Not Recovered/Not Resolved]
  - Fungaemia [Recovered/Resolved]
  - Pyrexia [Recovered/Resolved]
  - Septic shock [Not Recovered/Not Resolved]
  - Clostridium difficile colitis [Recovering/Resolving]

NARRATIVE: CASE EVENT DATE: 20190820
